FAERS Safety Report 11195021 (Version 1)
Quarter: 2015Q2

REPORT INFORMATION
  Report Type: Spontaneous
  Country: SI (occurrence: SI)
  Receive Date: 20150617
  Receipt Date: 20150617
  Transmission Date: 20150821
  Serious: Yes (Life-Threatening, Hospitalization)
  Sender: FDA-Public Use
  Company Number: SI-ACCORD-031397

PATIENT
  Age: 73 Year
  Sex: Male

DRUGS (1)
  1. CAPECITABINE. [Suspect]
     Active Substance: CAPECITABINE
     Indication: RECTAL CANCER

REACTIONS (9)
  - Neutrophilia [Not Recovered/Not Resolved]
  - Nausea [Not Recovered/Not Resolved]
  - Asthenia [Not Recovered/Not Resolved]
  - Headache [Not Recovered/Not Resolved]
  - Metabolic acidosis [Recovered/Resolved]
  - Flushing [Not Recovered/Not Resolved]
  - Mesenteric artery thrombosis [Unknown]
  - Leukocytosis [Not Recovered/Not Resolved]
  - Hypophosphataemia [Not Recovered/Not Resolved]
